FAERS Safety Report 14565251 (Version 1)
Quarter: 2018Q1

REPORT INFORMATION
  Report Type: Spontaneous
  Country: US (occurrence: US)
  Receive Date: 20180223
  Receipt Date: 20180223
  Transmission Date: 20180509
  Serious: Yes (Other)
  Sender: FDA-Public Use
  Company Number: US-ROCHE-2073171

PATIENT
  Sex: Female

DRUGS (1)
  1. OCREVUS [Suspect]
     Active Substance: OCRELIZUMAB
     Indication: PRODUCT USED FOR UNKNOWN INDICATION
     Dosage: ONGOING: YES?RECEIVED 2 INFUSIONS OF FIRST DOSE
     Route: 042

REACTIONS (3)
  - Nuclear magnetic resonance imaging abnormal [Unknown]
  - Gait disturbance [Unknown]
  - Hypoaesthesia [Unknown]
